FAERS Safety Report 8935353 (Version 1)
Quarter: 2012Q4

REPORT INFORMATION
  Report Type: Spontaneous
  Country: US (occurrence: None)
  Receive Date: 20121127
  Receipt Date: 20121127
  Transmission Date: 20130627
  Serious: No
  Sender: FDA-Public Use
  Company Number: None

PATIENT
  Sex: Female
  Weight: 49.9 kg

DRUGS (1)
  1. AZATHIOPRINE [Suspect]
     Indication: CROHN^S COLITIS
     Dates: start: 20050101, end: 20120930

REACTIONS (3)
  - Product substitution issue [None]
  - Crohn^s disease [None]
  - Therapeutic response decreased [None]
